FAERS Safety Report 8224258-6 (Version None)
Quarter: 2012Q1

REPORT INFORMATION
  Report Type: 
  Country: None (occurrence: None)
  Receive Date: 20120321
  Receipt Date: 20120319
  Transmission Date: 20120608
  Serious: Yes (Other)
  Sender: FDA-Public Use
  Company Number: TR-PFIZER INC-2012064789

PATIENT
  Age: 17 Year
  Sex: Female

DRUGS (1)
  1. SERTRALINE HYDROCHLORIDE [Suspect]
     Indication: TENSION HEADACHE
     Dosage: 50MG, DAILY

REACTIONS (1)
  - OROMANDIBULAR DYSTONIA [None]
